FAERS Safety Report 20035917 (Version 1)
Quarter: 2021Q4

REPORT INFORMATION
  Report Type: Other
  Country: US (occurrence: None)
  Receive Date: 20211105
  Receipt Date: 20211105
  Transmission Date: 20220303
  Serious: Yes (Other)
  Sender: FDA-Public Use
  Company Number: US-ROCHE-2949844

PATIENT
  Sex: Female

DRUGS (7)
  1. ESBRIET [Suspect]
     Active Substance: PIRFENIDONE
     Indication: Pulmonary fibrosis
     Dosage: TAKE 2 CAPSULE(S) BY MOUTH 3 TIMES A DAY WITH FOOD
     Route: 048
  2. ESBRIET [Suspect]
     Active Substance: PIRFENIDONE
     Indication: Dyspnoea
  3. LOSARTAN [Concomitant]
     Active Substance: LOSARTAN
  4. BUDESONIDE [Concomitant]
     Active Substance: BUDESONIDE
  5. RANOLAZINE [Concomitant]
     Active Substance: RANOLAZINE
  6. ISOSORBIDE [Concomitant]
     Active Substance: ISOSORBIDE
  7. METOPROLOL [Concomitant]
     Active Substance: METOPROLOL

REACTIONS (2)
  - Coronary artery disease [Unknown]
  - Cardiomyopathy [Unknown]
